FAERS Safety Report 11218603 (Version 2)
Quarter: 2015Q3

REPORT INFORMATION
  Report Type: Spontaneous
  Country: IT (occurrence: FR)
  Receive Date: 20150625
  Receipt Date: 20150714
  Transmission Date: 20151125
  Serious: Yes (Hospitalization)
  Sender: FDA-Public Use
  Company Number: FR-FRI-1000077651

PATIENT
  Age: 80 Year
  Sex: Female

DRUGS (6)
  1. ORBENINE [Suspect]
     Active Substance: CLOXACILLIN SODIUM
     Indication: OSTEITIS
     Dosage: 6 GRAM
     Route: 042
     Dates: start: 20150504, end: 20150510
  2. PYOSTACINE [Suspect]
     Active Substance: PRISTINAMYCIN
     Indication: ABSCESS
     Dosage: 3 GRAM
     Route: 048
     Dates: start: 20150423, end: 20150504
  3. RULID [Suspect]
     Active Substance: ROXITHROMYCIN
     Indication: LUNG DISORDER
     Dosage: 2 DOSAGE FORMS
     Route: 048
     Dates: start: 20150516, end: 20150518
  4. DALACINE [Suspect]
     Active Substance: CLINDAMYCIN HYDROCHLORIDE
     Indication: OSTEITIS
     Dosage: 2400 MG
     Route: 048
     Dates: start: 20150504, end: 20150518
  5. RIFADINE [Suspect]
     Active Substance: RIFAMPIN
     Indication: OSTEITIS
     Dosage: 1200 MG
     Route: 048
     Dates: start: 20150511, end: 20150518
  6. NEBIVOLOL. [Suspect]
     Active Substance: NEBIVOLOL
     Indication: ACUTE PULMONARY OEDEMA
     Dosage: 2.5 MG
     Route: 048
     Dates: start: 20150516, end: 20150519

REACTIONS (3)
  - Cell death [Recovered/Resolved]
  - Jaundice [Recovered/Resolved]
  - Off label use [Recovered/Resolved]

NARRATIVE: CASE EVENT DATE: 20150516
